FAERS Safety Report 14675349 (Version 1)
Quarter: 2018Q1

REPORT INFORMATION
  Report Type: Spontaneous
  Country: US (occurrence: US)
  Receive Date: 20180323
  Receipt Date: 20180323
  Transmission Date: 20180509
  Serious: No
  Sender: FDA-Public Use
  Company Number: US-TELIGENT, INC-IGIL20180162

PATIENT
  Age: 87 Year
  Sex: Male

DRUGS (1)
  1. ECONAZOLE NITRATE CREAM 1% [Suspect]
     Active Substance: ECONAZOLE NITRATE
     Indication: FUNGAL INFECTION
     Route: 061
     Dates: start: 2018, end: 20180322

REACTIONS (2)
  - Scrotal irritation [Recovering/Resolving]
  - Scrotal erythema [Recovering/Resolving]

NARRATIVE: CASE EVENT DATE: 20180319
